FAERS Safety Report 8861479 (Version 2)
Quarter: 2013Q3

REPORT INFORMATION
  Report Type: Spontaneous
  Country: US (occurrence: US)
  Receive Date: 20121025
  Receipt Date: 20130930
  Transmission Date: 20140515
  Serious: No
  Sender: FDA-Public Use
  Company Number: US-AMGEN-USASP2012014348

PATIENT
  Age: 59 Year
  Sex: Male
  Weight: 99 kg

DRUGS (3)
  1. ENBREL [Suspect]
     Indication: PRODUCT USED FOR UNKNOWN INDICATION
     Dosage: 50 MG, QWK
     Route: 058
  2. SIMPONI [Concomitant]
     Dosage: UNK
  3. OMEPRAZOLE [Concomitant]
     Dosage: 20 MG, UNK
     Route: 048

REACTIONS (2)
  - Therapeutic response decreased [Unknown]
  - Fungal skin infection [Unknown]
